FAERS Safety Report 13352335 (Version 1)
Quarter: 2017Q1

REPORT INFORMATION
  Report Type: Spontaneous
  Country: US (occurrence: US)
  Receive Date: 20170320
  Receipt Date: 20170320
  Transmission Date: 20170429
  Serious: No
  Sender: FDA-Public Use
  Company Number: US-SA-2017SA014611

PATIENT
  Age: 68 Year
  Sex: Male

DRUGS (1)
  1. NASACORT ALLERGY 24HR [Suspect]
     Active Substance: TRIAMCINOLONE ACETONIDE
     Indication: MULTIPLE ALLERGIES
     Dosage: START DATE 3 OR 4 YEARS AGO?DOSE 2 PUMPS PER NOSTRIL
     Route: 045

REACTIONS (5)
  - Rhinorrhoea [Unknown]
  - Drug ineffective [Unknown]
  - Rhinitis allergic [Unknown]
  - Sneezing [Unknown]
  - Nasal congestion [Unknown]
